FAERS Safety Report 9971401 (Version 1)
Quarter: 2014Q1

REPORT INFORMATION
  Report Type: Spontaneous
  Country: US (occurrence: None)
  Receive Date: 20140305
  Receipt Date: 20140305
  Transmission Date: 20141002
  Serious: Yes (Other)
  Sender: FDA-Public Use
  Company Number: None

PATIENT
  Age: 62 Year
  Sex: Female
  Weight: 72.58 kg

DRUGS (1)
  1. COLGATE PREVIDENT 5000 [Suspect]
     Indication: DENTAL DISORDER PROPHYLAXIS
     Route: 004
     Dates: start: 20130318, end: 20140225

REACTIONS (1)
  - Tooth injury [None]
